FAERS Safety Report 5125320-7 (Version None)
Quarter: 2006Q4

REPORT INFORMATION
  Report Type: 
  Country: None (occurrence: None)
  Receive Date: 20061006
  Receipt Date: 20060923
  Transmission Date: 20070319
  Serious: Yes (Other)
  Sender: FDA-Public Use
  Company Number: 2006104932

PATIENT
  Age: 21 Year
  Sex: Male
  Weight: 63.05 kg

DRUGS (1)
  1. CHANTIX [Suspect]
     Indication: NICOTINE DEPENDENCE
     Dosage: 2 MG (1 MG, 2 IN 1 D), ORAL
     Route: 048
     Dates: start: 20060730

REACTIONS (3)
  - ABNORMAL DREAMS [None]
  - ANXIETY [None]
  - DRUG WITHDRAWAL SYNDROME [None]
